FAERS Safety Report 6393272-8 (Version None)
Quarter: 2009Q4

REPORT INFORMATION
  Report Type: 
  Country: None (occurrence: None)
  Receive Date: 20091008
  Receipt Date: 20090925
  Transmission Date: 20100525
  Serious: Yes (Disabling, Other)
  Sender: FDA-Public Use
  Company Number: US-PFIZER INC-2004109601

PATIENT
  Sex: Female

DRUGS (4)
  1. PREMARIN [Suspect]
     Indication: HORMONE REPLACEMENT THERAPY
     Dosage: 1.25 MG, UNK
     Route: 048
     Dates: start: 19900101, end: 20020101
  2. PREMARIN [Suspect]
     Dosage: 0.3 MG, UNK
     Dates: start: 20030101
  3. PREMARIN [Suspect]
     Dosage: 0.625 MG, UNK
     Dates: start: 20030101
  4. ACETYLSALICYLIC ACID [Concomitant]
     Indication: BLOOD DISORDER
     Dosage: 325 MG, UNK
     Dates: start: 19960501

REACTIONS (1)
  - OVARIAN CANCER [None]
